FAERS Safety Report 10174108 (Version 4)
Quarter: 2015Q2

REPORT INFORMATION
  Report Type: Spontaneous
  Country: US (occurrence: US)
  Receive Date: 20140515
  Receipt Date: 20150525
  Transmission Date: 20150821
  Serious: No
  Sender: FDA-Public Use
  Company Number: US-JNJFOC-20140507830

PATIENT
  Sex: Male
  Weight: 63.5 kg

DRUGS (2)
  1. STELARA [Suspect]
     Active Substance: USTEKINUMAB
     Indication: PSORIASIS
     Route: 058
     Dates: start: 20110901
  2. TEMOVATE [Concomitant]
     Active Substance: CLOBETASOL PROPIONATE
     Route: 061
     Dates: end: 20111010

REACTIONS (1)
  - Tuberculin test positive [Unknown]

NARRATIVE: CASE EVENT DATE: 2014
